FAERS Safety Report 5139476-3 (Version None)
Quarter: 2006Q4

REPORT INFORMATION
  Report Type: 
  Country: None (occurrence: None)
  Receive Date: 20061024
  Receipt Date: 20061011
  Transmission Date: 20070319
  Serious: Yes (Hospitalization, Other)
  Sender: FDA-Public Use
  Company Number: 2006115225

PATIENT
  Age: 51 Year
  Sex: Male
  Weight: 95.2554 kg

DRUGS (1)
  1. BEXTRA [Suspect]
     Indication: ARTHRITIS
     Dosage: 20 MG, ORAL
     Route: 048
     Dates: start: 20040101

REACTIONS (10)
  - AMNESIA [None]
  - CARDIOVASCULAR DISORDER [None]
  - CEREBROVASCULAR ACCIDENT [None]
  - CERVICAL VERTEBRAL FRACTURE [None]
  - DEPRESSION [None]
  - INJURY [None]
  - RIB FRACTURE [None]
  - ROAD TRAFFIC ACCIDENT [None]
  - SKULL FRACTURE [None]
  - STRESS [None]
